FAERS Safety Report 18508501 (Version 1)
Quarter: 2020Q4

REPORT INFORMATION
  Report Type: Spontaneous
  Country: US (occurrence: US)
  Receive Date: 20201116
  Receipt Date: 20201116
  Transmission Date: 20210114
  Serious: Yes (Hospitalization)
  Sender: FDA-Public Use
  Company Number: US-SA-2020SA322110

PATIENT

DRUGS (1)
  1. DUPIXENT [Suspect]
     Active Substance: DUPILUMAB
     Indication: DERMATITIS ATOPIC
     Dosage: 300 MG, QOW
     Route: 058
     Dates: start: 202009, end: 202009

REACTIONS (4)
  - Pain in extremity [Unknown]
  - Joint swelling [Unknown]
  - Peripheral swelling [Unknown]
  - Hypokinesia [Unknown]

NARRATIVE: CASE EVENT DATE: 2020
